FAERS Safety Report 8343785-4 (Version None)
Quarter: 2012Q2

REPORT INFORMATION
  Report Type: 
  Country: None (occurrence: None)
  Receive Date: 20120508
  Receipt Date: 20120427
  Transmission Date: 20120825
  Serious: Yes (Hospitalization, Disabling)
  Sender: FDA-Public Use
  Company Number: BR-BAYER-2012-042372

PATIENT
  Age: 57 Year
  Sex: Male

DRUGS (3)
  1. AVELOX [Suspect]
     Indication: PNEUMONIA
     Dosage: UNK
     Route: 048
     Dates: start: 20120308, end: 20120301
  2. AVELOX [Suspect]
     Dosage: UNK
     Route: 042
     Dates: start: 20120301, end: 20120301
  3. AVELOX [Suspect]

REACTIONS (4)
  - PNEUMONIA [None]
  - ANOSMIA [None]
  - LUNG INFILTRATION [None]
  - AGEUSIA [None]
